FAERS Safety Report 15208782 (Version 1)
Quarter: 2018Q3

REPORT INFORMATION
  Report Type: Spontaneous
  Country: BR (occurrence: BR)
  Receive Date: 20180727
  Receipt Date: 20180727
  Transmission Date: 20181010
  Serious: Yes (Hospitalization)
  Sender: FDA-Public Use
  Company Number: BR-PFIZER INC-2018214201

PATIENT
  Age: 70 Year
  Sex: Female

DRUGS (1)
  1. SUTENT [Suspect]
     Active Substance: SUNITINIB MALATE
     Dosage: 50 MG (1 CAP), CYCLIC (ONCE A DAY, 1HR AFTER MEAL, 14 DAYS AND PAUSE THEN USE FOR 1 WEEK)
     Dates: start: 20180620, end: 2018

REACTIONS (2)
  - Encephalopathy [Unknown]
  - Liver disorder [Unknown]

NARRATIVE: CASE EVENT DATE: 2018
